FAERS Safety Report 8169931-3 (Version None)
Quarter: 2012Q1

REPORT INFORMATION
  Report Type: 
  Country: None (occurrence: None)
  Receive Date: 20120228
  Receipt Date: 20120228
  Transmission Date: 20120608
  Serious: Yes (Hospitalization)
  Sender: FDA-Public Use
  Company Number: None

PATIENT
  Sex: Female
  Weight: 68.492 kg

DRUGS (1)
  1. BETASERON [Suspect]
     Indication: MULTIPLE SCLEROSIS
     Dosage: 250 MCG
     Route: 058
     Dates: start: 20030101, end: 20120109

REACTIONS (10)
  - METASTATIC NEOPLASM [None]
  - INFREQUENT BOWEL MOVEMENTS [None]
  - OVARIAN CANCER METASTATIC [None]
  - DECREASED APPETITE [None]
  - METASTASES TO LARGE INTESTINE [None]
  - ABDOMINAL DISTENSION [None]
  - ABDOMINAL DISCOMFORT [None]
  - METASTASES TO LIVER [None]
  - PAIN [None]
  - METASTASIS [None]
